FAERS Safety Report 13960649 (Version 1)
Quarter: 2017Q3

REPORT INFORMATION
  Report Type: Spontaneous
  Country: US (occurrence: US)
  Receive Date: 20170912
  Receipt Date: 20170912
  Transmission Date: 20171128
  Serious: No
  Sender: FDA-Public Use
  Company Number: US-ALLERGAN-1707059US

PATIENT
  Sex: Male

DRUGS (1)
  1. LEXAPRO [Suspect]
     Active Substance: ESCITALOPRAM OXALATE
     Indication: ANXIETY DISORDER
     Route: 065

REACTIONS (6)
  - Chills [Unknown]
  - Insomnia [Unknown]
  - Drug ineffective [Unknown]
  - Retching [Unknown]
  - Hyperhidrosis [Unknown]
  - Dyspepsia [Unknown]
